FAERS Safety Report 10217257 (Version 2)
Quarter: 2014Q2

REPORT INFORMATION
  Report Type: Spontaneous
  Country: JP (occurrence: JP)
  Receive Date: 20140604
  Receipt Date: 20140604
  Transmission Date: 20141212
  Serious: Yes (Hospitalization, Other)
  Sender: FDA-Public Use
  Company Number: PHHY2014JP044451

PATIENT
  Age: 93 Year
  Sex: Female

DRUGS (1)
  1. EXELON PATCH [Suspect]
     Indication: DEMENTIA ALZHEIMER^S TYPE
     Dosage: 9.5 MG/24 HOURS (18 MG DAILY)
     Route: 062
     Dates: start: 201401, end: 20140407

REACTIONS (8)
  - Ventricular extrasystoles [Recovered/Resolved]
  - Blood potassium decreased [Recovered/Resolved]
  - Femur fracture [Unknown]
  - Dental caries [Unknown]
  - Tooth infection [Unknown]
  - Nausea [Recovered/Resolved]
  - Vomiting [Recovered/Resolved]
  - Decreased appetite [Recovering/Resolving]
